FAERS Safety Report 9204258 (Version 2)
Quarter: 2013Q2

REPORT INFORMATION
  Report Type: Spontaneous
  Country: KR (occurrence: KR)
  Receive Date: 20130402
  Receipt Date: 20130416
  Transmission Date: 20140414
  Serious: Yes (Hospitalization)
  Sender: FDA-Public Use
  Company Number: KR-ELI_LILLY_AND_COMPANY-KR201303008818

PATIENT
  Age: 58 Year
  Sex: Male

DRUGS (7)
  1. HUMALOG 50% LISPRO, 50% NPL [Suspect]
     Indication: TYPE 2 DIABETES MELLITUS
     Dosage: 20 U, EACH MORNING
     Route: 058
     Dates: start: 20111228, end: 20130320
  2. HUMALOG 50% LISPRO, 50% NPL [Suspect]
     Dosage: 14 U, AT LUNCH
     Route: 058
     Dates: start: 20111228, end: 20130320
  3. HUMALOG 50% LISPRO, 50% NPL [Suspect]
     Dosage: 20 U, EACH EVENING
     Route: 058
     Dates: start: 20111228, end: 20130320
  4. HUMALOG 50% LISPRO, 50% NPL [Suspect]
     Dosage: 10 U, EACH MORNING
  5. HUMALOG 50% LISPRO, 50% NPL [Suspect]
     Dosage: 10 U, AT LUNCH
  6. HUMALOG 50% LISPRO, 50% NPL [Suspect]
     Dosage: 6 U, EACH EVENING
  7. ETHANOL [Concomitant]

REACTIONS (7)
  - Hyperglycaemia [Recovering/Resolving]
  - Hypertension [Recovering/Resolving]
  - Hypoglycaemia [Recovered/Resolved]
  - Helicobacter gastritis [Unknown]
  - Dreamy state [Unknown]
  - Asthenia [Unknown]
  - Dizziness [Unknown]
